FAERS Safety Report 5745398-7 (Version None)
Quarter: 2008Q2

REPORT INFORMATION
  Report Type: 
  Country: None (occurrence: None)
  Receive Date: 20080521
  Receipt Date: 20080417
  Transmission Date: 20081010
  Serious: Yes (Death)
  Sender: FDA-Public Use
  Company Number: US-NOVOPROD-275093

PATIENT

DRUGS (3)
  1. NOVOSEVEN [Suspect]
     Indication: DRUG THERAPY CHANGED
     Dosage: UNKNOWN
     Route: 042
  2. COUMADIN [Concomitant]
     Indication: DRUG USE FOR UNKNOWN INDICATION
     Dosage: UNK, UNK
     Route: 048
  3. VITAMIN K TAB [Concomitant]
     Indication: DRUG THERAPY CHANGED
     Dosage: 5 MG, SINGLE
     Route: 042

REACTIONS (1)
  - DEATH [None]
